FAERS Safety Report 14939583 (Version 1)
Quarter: 2018Q2

REPORT INFORMATION
  Report Type: Spontaneous
  Country: ES (occurrence: ES)
  Receive Date: 20180525
  Receipt Date: 20180525
  Transmission Date: 20180711
  Serious: Yes (Other)
  Sender: FDA-Public Use
  Company Number: PHHY2018ES005837

PATIENT
  Age: 54 Year
  Sex: Female

DRUGS (3)
  1. QUETIAPINE. [Interacting]
     Active Substance: QUETIAPINE
     Indication: PRODUCT USED FOR UNKNOWN INDICATION
     Dosage: 60 MG, QD
     Route: 065
  2. VALPROIC ACID. [Suspect]
     Active Substance: VALPROIC ACID
     Indication: PRODUCT USED FOR UNKNOWN INDICATION
     Dosage: 700 MG, QD
     Route: 065
  3. QUETIAPINE. [Interacting]
     Active Substance: QUETIAPINE
     Dosage: 400 MG, QD
     Route: 065

REACTIONS (6)
  - Drug interaction [Unknown]
  - Pain [Unknown]
  - Speech disorder [Unknown]
  - Gait disturbance [Unknown]
  - Prescribed overdose [Unknown]
  - Depressed level of consciousness [Unknown]
